FAERS Safety Report 13059553 (Version 2)
Quarter: 2016Q4

REPORT INFORMATION
  Report Type: Spontaneous
  Country: US (occurrence: US)
  Receive Date: 20161223
  Receipt Date: 20161229
  Transmission Date: 20170207
  Serious: Yes (Other)
  Sender: FDA-Public Use
  Company Number: US-ELI_LILLY_AND_COMPANY-US201612007045

PATIENT
  Sex: Female

DRUGS (15)
  1. AMBIEN CR [Concomitant]
     Active Substance: ZOLPIDEM TARTRATE
  2. FLUCONAZOLE. [Concomitant]
     Active Substance: FLUCONAZOLE
  3. LEXAPRO [Concomitant]
     Active Substance: ESCITALOPRAM OXALATE
  4. PREVACID [Concomitant]
     Active Substance: LANSOPRAZOLE
  5. ESTRADIOL. [Concomitant]
     Active Substance: ESTRADIOL
  6. ACIPHEX [Concomitant]
     Active Substance: RABEPRAZOLE SODIUM
  7. APO-FOLIC ACID [Concomitant]
     Active Substance: FOLIC ACID
  8. TALTZ [Suspect]
     Active Substance: IXEKIZUMAB
     Indication: PSORIASIS
     Dosage: 160 MG, SINGLE
     Route: 065
     Dates: start: 20161128
  9. FENTANYL. [Concomitant]
     Active Substance: FENTANYL
  10. METHOTREXATE. [Concomitant]
     Active Substance: METHOTREXATE
  11. TALTZ [Suspect]
     Active Substance: IXEKIZUMAB
     Dosage: 80 MG, 2/W EVERY TWO WEEKS
     Route: 065
     Dates: start: 20161212
  12. TOPAMAX [Concomitant]
     Active Substance: TOPIRAMATE
  13. TALTZ [Suspect]
     Active Substance: IXEKIZUMAB
     Dosage: 80 MG, 2/W
     Route: 058
     Dates: start: 20161128
  14. DILAUDID [Concomitant]
     Active Substance: HYDROMORPHONE HYDROCHLORIDE
  15. VALTREX [Concomitant]
     Active Substance: VALACYCLOVIR HYDROCHLORIDE

REACTIONS (13)
  - Injection site erythema [Not Recovered/Not Resolved]
  - Pharyngeal oedema [Not Recovered/Not Resolved]
  - Urticaria [Unknown]
  - Injection site urticaria [Recovered/Resolved]
  - Injection site pruritus [Not Recovered/Not Resolved]
  - Erythema [Unknown]
  - Injection site pain [Not Recovered/Not Resolved]
  - Swelling [Unknown]
  - Hypersensitivity [Not Recovered/Not Resolved]
  - Injection site warmth [Not Recovered/Not Resolved]
  - Blood pressure increased [Unknown]
  - Injection site swelling [Not Recovered/Not Resolved]
  - Pharyngeal neoplasm [Not Recovered/Not Resolved]

NARRATIVE: CASE EVENT DATE: 20161128
